FAERS Safety Report 7779114-4 (Version None)
Quarter: 2011Q3

REPORT INFORMATION
  Report Type: 
  Country: None (occurrence: None)
  Receive Date: 20110926
  Receipt Date: 20110919
  Transmission Date: 20111222
  Serious: Yes (Other)
  Sender: FDA-Public Use
  Company Number: CHPA2011NL12948

PATIENT
  Sex: Male
  Weight: 3.745 kg

DRUGS (2)
  1. VITAMINS NOS [Concomitant]
     Dosage: UNK, UNK
     Route: 064
  2. OTRIVIN [Suspect]
     Dosage: UNK, UNK
     Route: 064
     Dates: start: 20100101, end: 20110101

REACTIONS (3)
  - POSTMATURE BABY [None]
  - MATERNAL EXPOSURE DURING PREGNANCY [None]
  - HYPOXIA [None]
